FAERS Safety Report 19800708 (Version 1)
Quarter: 2021Q3

REPORT INFORMATION
  Report Type: Spontaneous
  Country: US (occurrence: US)
  Receive Date: 20210908
  Receipt Date: 20210908
  Transmission Date: 20211014
  Serious: No
  Sender: FDA-Public Use
  Company Number: US-TARO-2020TAR01377

PATIENT

DRUGS (2)
  1. WARFARIN SODIUM TABLETS USP 5MG [Suspect]
     Active Substance: WARFARIN SODIUM
     Indication: ANTICOAGULANT THERAPY
     Dosage: 5?5.5 MG, 1 TABLET EVERYDAY PLUS AN EXTRA HALF OF A TABLET MONDAY, WEDNESDAY, FRIDAY
     Route: 048
     Dates: start: 20200719
  2. WARFARIN SODIUM TABLETS USP 5MG [Suspect]
     Active Substance: WARFARIN SODIUM
     Indication: ATRIAL FIBRILLATION
     Dosage: QD, 5?5.5 MG, 1 TABLET EVERYDAY PLUS AN EXTRA HALF OF A TABLET MONDAY, WEDNESDAY, FRIDAY
     Route: 048

REACTIONS (1)
  - International normalised ratio increased [Recovering/Resolving]

NARRATIVE: CASE EVENT DATE: 20200811
